FAERS Safety Report 5784654-3 (Version None)
Quarter: 2008Q2

REPORT INFORMATION
  Report Type: 
  Country: None (occurrence: None)
  Receive Date: 20080605
  Receipt Date: 20080410
  Transmission Date: 20081010
  Serious: No
  Sender: FDA-Public Use
  Company Number: A0722104A

PATIENT
  Age: 56 Year
  Sex: Female
  Weight: 81 kg

DRUGS (1)
  1. ALLI [Suspect]
     Dates: start: 20080402, end: 20080406

REACTIONS (4)
  - ABDOMINAL PAIN UPPER [None]
  - FLATULENCE [None]
  - GASTROINTESTINAL PAIN [None]
  - VOMITING [None]
